FAERS Safety Report 22962668 (Version 2)
Quarter: 2023Q4

REPORT INFORMATION
  Report Type: Spontaneous
  Country: FR (occurrence: FR)
  Receive Date: 20230920
  Receipt Date: 20231003
  Transmission Date: 20240110
  Serious: Yes (Hospitalization)
  Sender: FDA-Public Use
  Company Number: None

PATIENT
  Age: 72 Year
  Sex: Male
  Weight: 71 kg

DRUGS (4)
  1. RAPAMUNE [Suspect]
     Active Substance: SIROLIMUS
     Indication: Aplasia pure red cell
     Dosage: UNK
     Route: 048
     Dates: start: 20230814, end: 20230822
  2. DUPHALAC [Concomitant]
     Active Substance: LACTULOSE
     Dosage: UNK
  3. EXJADE [Concomitant]
     Active Substance: DEFERASIROX
     Dosage: UNK
  4. URAPIDIL [Concomitant]
     Active Substance: URAPIDIL
     Dosage: UNK

REACTIONS (3)
  - Hepatic cytolysis [Recovering/Resolving]
  - Pulmonary embolism [Recovering/Resolving]
  - Off label use [Unknown]

NARRATIVE: CASE EVENT DATE: 20230814
